FAERS Safety Report 16253203 (Version 1)
Quarter: 2019Q2

REPORT INFORMATION
  Report Type: Spontaneous
  Country: US (occurrence: US)
  Receive Date: 20190429
  Receipt Date: 20190429
  Transmission Date: 20190711
  Serious: No
  Sender: FDA-Public Use
  Company Number: US-SA-2019SA115926

PATIENT
  Age: 69 Year
  Sex: Female
  Weight: 65.7 kg

DRUGS (10)
  1. PRALUENT [Suspect]
     Active Substance: ALIROCUMAB
     Indication: TYPE IIA HYPERLIPIDAEMIA
     Dosage: 75 MG, QOW
     Dates: start: 20190101
  2. TUMS [Concomitant]
     Active Substance: CALCIUM CARBONATE
  3. ESZOPICLONE. [Concomitant]
     Active Substance: ESZOPICLONE
  4. LYRICA [Concomitant]
     Active Substance: PREGABALIN
  5. RANITIDINE HCL [Concomitant]
     Active Substance: RANITIDINE HYDROCHLORIDE
  6. ALPRAZOLAM. [Concomitant]
     Active Substance: ALPRAZOLAM
  7. PROLIA [Concomitant]
     Active Substance: DENOSUMAB
  8. DEXILANT [Concomitant]
     Active Substance: DEXLANSOPRAZOLE
  9. MIRTAZAPINE. [Concomitant]
     Active Substance: MIRTAZAPINE
  10. ERYTHROMYCIN. [Concomitant]
     Active Substance: ERYTHROMYCIN

REACTIONS (1)
  - Fatigue [Unknown]

NARRATIVE: CASE EVENT DATE: 2019
